FAERS Safety Report 5108770-4 (Version None)
Quarter: 2006Q3

REPORT INFORMATION
  Report Type: 
  Country: None (occurrence: None)
  Receive Date: 20060918
  Receipt Date: 20060905
  Transmission Date: 20061208
  Serious: Yes (Other)
  Sender: FDA-Public Use
  Company Number: 2006107754

PATIENT
  Sex: Female

DRUGS (16)
  1. LYRICA [Suspect]
     Indication: HYPOAESTHESIA
     Dosage: 75 MG (75 MG, 1 IN 1 D),
     Dates: start: 20060101, end: 20060101
  2. LYRICA [Suspect]
     Indication: PAIN
     Dosage: 75 MG (75 MG, 1 IN 1 D),
     Dates: start: 20060101, end: 20060101
  3. LYRICA [Suspect]
     Indication: PARAESTHESIA
     Dosage: 75 MG (75 MG, 1 IN 1 D),
     Dates: start: 20060101, end: 20060101
  4. GABAPENTIN [Suspect]
     Indication: HYPOAESTHESIA
     Dosage: 300 MG (300 MG, 1 IN 1 D)
     Dates: start: 20060101, end: 20060101
  5. GABAPENTIN [Suspect]
     Indication: PAIN
     Dosage: 300 MG (300 MG, 1 IN 1 D)
     Dates: start: 20060101, end: 20060101
  6. GABAPENTIN [Suspect]
     Indication: PARAESTHESIA
     Dosage: 300 MG (300 MG, 1 IN 1 D)
     Dates: start: 20060101, end: 20060101
  7. PREMARIN [Concomitant]
  8. GLIPIZIDE [Concomitant]
  9. ALLEGRA [Concomitant]
  10. PLAVIX [Concomitant]
  11. LANTUS [Concomitant]
  12. LISINOPRIL [Concomitant]
  13. COMBIVENT [Concomitant]
  14. ALBUTEROL [Concomitant]
  15. DIURETICS (DIURETICS) [Concomitant]
  16. GLUCOPHAGE [Concomitant]

REACTIONS (12)
  - ALOPECIA [None]
  - ANOREXIA [None]
  - ANXIETY [None]
  - DISTURBANCE IN ATTENTION [None]
  - DRUG INEFFECTIVE [None]
  - HYPERPHAGIA [None]
  - INSOMNIA [None]
  - NAUSEA [None]
  - NERVOUSNESS [None]
  - VOMITING [None]
  - WEIGHT DECREASED [None]
  - WEIGHT INCREASED [None]
